FAERS Safety Report 7983646-3 (Version None)
Quarter: 2011Q4

REPORT INFORMATION
  Report Type: 
  Country: None (occurrence: None)
  Receive Date: 20111215
  Receipt Date: 20111206
  Transmission Date: 20120403
  Serious: Yes (Hospitalization, Other)
  Sender: FDA-Public Use
  Company Number: US-ASTRAZENECA-2010SE59384

PATIENT
  Age: 47 Year
  Sex: Female
  Weight: 111.1 kg

DRUGS (7)
  1. PREVACID [Concomitant]
     Indication: GASTROOESOPHAGEAL REFLUX DISEASE
     Route: 048
     Dates: start: 20080101
  2. SYMBICORT [Suspect]
     Indication: ASTHMA
     Dosage: 160/4.5 MCG TWO PUFFS TWO TIMES A DAY
     Route: 055
     Dates: start: 20081001
  3. SIMVASTATIN [Concomitant]
     Indication: BLOOD CHOLESTEROL ABNORMAL
     Route: 048
     Dates: start: 20080101
  4. FOSAMAX [Concomitant]
     Indication: BONE LOSS
     Route: 048
     Dates: start: 20080101
  5. XOPONEX [Concomitant]
     Indication: ASTHMA
     Dosage: AS NEEDED
     Route: 055
     Dates: start: 20080101
  6. SYMBICORT [Suspect]
     Indication: CHRONIC OBSTRUCTIVE PULMONARY DISEASE
     Dosage: 160/4.5 MCG TWO PUFFS TWO TIMES A DAY
     Route: 055
     Dates: start: 20081001
  7. COUMADIN [Concomitant]
     Indication: THROMBOSIS
     Route: 048
     Dates: start: 20100628

REACTIONS (7)
  - THROMBOSIS [None]
  - CANDIDIASIS [None]
  - ENDOTRACHEAL INTUBATION [None]
  - FUNGAL INFECTION [None]
  - ASTHMA [None]
  - RESPIRATORY FAILURE [None]
  - MALAISE [None]
